FAERS Safety Report 5000551-5 (Version None)
Quarter: 2006Q2

REPORT INFORMATION
  Report Type: 
  Country: None (occurrence: None)
  Receive Date: 20060512
  Receipt Date: 20051018
  Transmission Date: 20061013
  Serious: Yes (Other)
  Sender: FDA-Public Use
  Company Number: US-BRISTOL-MYERS SQUIBB COMPANY-13149125

PATIENT
  Sex: Male

DRUGS (7)
  1. CYTOXAN [Suspect]
     Route: 042
  2. MESNA [Concomitant]
  3. VINCRISTINE [Concomitant]
  4. DOXORUBICIN [Concomitant]
  5. BICARB [Concomitant]
     Indication: PREMEDICATION
  6. ZOFRAN [Concomitant]
     Indication: PREMEDICATION
  7. DEXAMETHASONE [Concomitant]
     Indication: PREMEDICATION

REACTIONS (1)
  - CYSTITIS HAEMORRHAGIC [None]
